FAERS Safety Report 5011043-1 (Version None)
Quarter: 2006Q2

REPORT INFORMATION
  Report Type: 
  Country: None (occurrence: None)
  Receive Date: 20060525
  Receipt Date: 20040511
  Transmission Date: 20061013
  Serious: No
  Sender: FDA-Public Use
  Company Number: US-BRISTOL-MYERS SQUIBB COMPANY-12584421

PATIENT
  Age: 66 Year
  Sex: Female
  Weight: 66 kg

DRUGS (1)
  1. NADOLOL [Suspect]
     Indication: ATRIAL FIBRILLATION
     Dosage: DOSAGE: 1/4 OF A 40MG TABLET
     Route: 048
     Dates: start: 20040414, end: 20040414

REACTIONS (3)
  - BLOOD PRESSURE FLUCTUATION [None]
  - DIZZINESS [None]
  - HEART RATE IRREGULAR [None]
